FAERS Safety Report 4967334-3 (Version None)
Quarter: 2006Q2

REPORT INFORMATION
  Report Type: 
  Country: None (occurrence: None)
  Receive Date: 20060404
  Receipt Date: 20060320
  Transmission Date: 20061013
  Serious: Yes (Death)
  Sender: FDA-Public Use
  Company Number: 8012862

PATIENT
  Age: 16 Year
  Sex: Male
  Weight: 72.5 kg

DRUGS (3)
  1. KEPPRA [Suspect]
     Indication: GRAND MAL CONVULSION
     Dosage: 1500 MG 2/D PO
     Route: 048
     Dates: start: 20050801, end: 20051020
  2. KEFLEX [Concomitant]
  3. ADVAIR DISKUS 100/50 [Concomitant]

REACTIONS (1)
  - DEATH [None]
